FAERS Safety Report 7092983-9 (Version None)
Quarter: 2010Q4

REPORT INFORMATION
  Report Type: 
  Country: None (occurrence: None)
  Receive Date: 20101110
  Receipt Date: 20080812
  Transmission Date: 20110411
  Serious: No
  Sender: FDA-Public Use
  Company Number: US-KINGPHARMUSA00001-K200800966

PATIENT
  Sex: Female

DRUGS (1)
  1. LEVOXYL [Suspect]
     Dates: start: 20070101

REACTIONS (5)
  - BLOOD THYROID STIMULATING HORMONE INCREASED [None]
  - GOITRE [None]
  - LOCAL SWELLING [None]
  - WEIGHT INCREASED [None]
  - WEIGHT LOSS POOR [None]
